FAERS Safety Report 6388245-5 (Version None)
Quarter: 2009Q4

REPORT INFORMATION
  Report Type: 
  Country: None (occurrence: None)
  Receive Date: 20091005
  Receipt Date: 20090924
  Transmission Date: 20100525
  Serious: Yes (Other)
  Sender: FDA-Public Use
  Company Number: JP-PFIZER INC-2009274791

PATIENT
  Age: 65 Year

DRUGS (1)
  1. CORTRIL [Suspect]
     Route: 048

REACTIONS (4)
  - BLOOD PRESSURE DECREASED [None]
  - BRADYCARDIA [None]
  - MALAISE [None]
  - SURGERY [None]
